FAERS Safety Report 4899364-4 (Version None)
Quarter: 2006Q1

REPORT INFORMATION
  Report Type: 
  Country: None (occurrence: None)
  Receive Date: 20060131
  Receipt Date: 20060124
  Transmission Date: 20060701
  Serious: Yes (Life-Threatening)
  Sender: FDA-Public Use
  Company Number: 2006011948

PATIENT
  Age: 17 Year
  Sex: Female

DRUGS (2)
  1. ZIPRASIDONE (CAPS) (ZIPRASIDONE) [Suspect]
     Indication: ACUTE PSYCHOSIS
     Dosage: 100 MG (2 IN 1 D), ORAL
     Route: 048
     Dates: start: 20050701, end: 20050701
  2. ZIPRASIDONE (CAPS) (ZIPRASIDONE) [Suspect]
     Indication: ACUTE PSYCHOSIS
     Dosage: 100 MG (2 IN 1 D), ORAL
     Route: 048
     Dates: start: 20050701

REACTIONS (1)
  - SUICIDE ATTEMPT [None]
